FAERS Safety Report 4586986-3 (Version None)
Quarter: 2005Q1

REPORT INFORMATION
  Report Type: 
  Country: None (occurrence: None)
  Receive Date: 20050218
  Receipt Date: 20050215
  Transmission Date: 20050727
  Serious: Yes (Death)
  Sender: FDA-Public Use
  Company Number: US-JNJFOC-20041206845

PATIENT
  Sex: Female
  Weight: 66.23 kg

DRUGS (2)
  1. DURAGESIC [Suspect]
     Route: 062
  2. DURAGESIC [Suspect]
     Route: 062

REACTIONS (3)
  - MEDICATION ERROR [None]
  - NARCOTIC INTOXICATION [None]
  - PULMONARY OEDEMA [None]
